FAERS Safety Report 21047741 (Version 1)
Quarter: 2022Q3

REPORT INFORMATION
  Report Type: Spontaneous
  Country: JP (occurrence: JP)
  Receive Date: 20220706
  Receipt Date: 20220706
  Transmission Date: 20221027
  Serious: Yes (Other)
  Sender: FDA-Public Use
  Company Number: JP-TAIHO-AB220517_P_1

PATIENT
  Age: 85 Year
  Sex: Female

DRUGS (1)
  1. ABRAXANE [Suspect]
     Active Substance: PACLITAXEL
     Indication: Breast cancer
     Dosage: DETAILS NOT REPORTED
     Route: 041

REACTIONS (1)
  - Macular oedema [Not Recovered/Not Resolved]
